FAERS Safety Report 4395549-4 (Version None)
Quarter: 2004Q3

REPORT INFORMATION
  Report Type: 
  Country: None (occurrence: None)
  Receive Date: 20040713
  Receipt Date: 20040707
  Transmission Date: 20050211
  Serious: Yes (Other)
  Sender: FDA-Public Use
  Company Number: 200415113US

PATIENT
  Sex: 0

DRUGS (2)
  1. LOVENOX [Suspect]
     Dosage: DOSE: NOT PROVIDED
  2. D5 1/2 NORMAL SALINE [Concomitant]
     Dosage: DOSE: NOT PROVIDED

REACTIONS (3)
  - ACTIVATED PARTIAL THROMBOPLASTIN TIME PROLONGED [None]
  - HAEMORRHAGE [None]
  - HYPONATRAEMIA [None]
